FAERS Safety Report 5741589-X (Version None)
Quarter: 2008Q2

REPORT INFORMATION
  Report Type: 
  Country: None (occurrence: None)
  Receive Date: 20080519
  Receipt Date: 20070412
  Transmission Date: 20081010
  Serious: No
  Sender: FDA-Public Use
  Company Number: US-BAYER-US-2007-012939

PATIENT
  Age: 78 Year
  Sex: Female
  Weight: 59 kg

DRUGS (1)
  1. ULTRAVIST 300 [Suspect]
     Indication: COMPUTERISED TOMOGRAM THORAX
     Dosage: UNIT DOSE: 100 ML
     Route: 042
     Dates: start: 20070328, end: 20070328

REACTIONS (4)
  - ERYTHEMA [None]
  - FACE OEDEMA [None]
  - FLUSHING [None]
  - URTICARIA [None]
